FAERS Safety Report 5143992-8 (Version None)
Quarter: 2006Q4

REPORT INFORMATION
  Report Type: 
  Country: None (occurrence: None)
  Receive Date: 20061102
  Receipt Date: 20061102
  Transmission Date: 20070319
  Serious: Yes (Hospitalization)
  Sender: FDA-Public Use
  Company Number: None

PATIENT
  Age: 54 Year
  Sex: Male
  Weight: 59.8 kg

DRUGS (5)
  1. DILANTIN [Suspect]
     Indication: CONVULSION
     Dosage: 500MG,DAILY,ORAL
     Route: 048
     Dates: start: 20060417
  2. ASPIRIN [Concomitant]
  3. TRAZODONE HCL [Concomitant]
  4. FLUTICAS/SALMETEROL [Concomitant]
  5. PROPOXYPHENE HCL [Concomitant]

REACTIONS (2)
  - COORDINATION ABNORMAL [None]
  - THERAPEUTIC AGENT TOXICITY [None]
